FAERS Safety Report 6980406-7 (Version None)
Quarter: 2010Q3

REPORT INFORMATION
  Report Type: 
  Country: None (occurrence: None)
  Receive Date: 20100908
  Receipt Date: 20100823
  Transmission Date: 20110219
  Serious: Yes (Hospitalization, Other)
  Sender: FDA-Public Use
  Company Number: 2010003551

PATIENT
  Age: 71 Year
  Sex: Male

DRUGS (9)
  1. ERLOTINIB (ERLOTINIB) TABLET, (ERLOTINIB) [Suspect]
     Indication: NON-SMALL CELL LUNG CANCER
     Dosage: (150 MG, QD,) ORAL
     Route: 048
     Dates: start: 20080123, end: 20080326
  2. PEMETREXED [Suspect]
     Indication: NON-SMALL CELL LUNG CANCER
     Dosage: (500 MG/M2, Q3W)
     Dates: start: 20080123
  3. FOLIC ACID [Concomitant]
  4. VITAMIN B12 [Concomitant]
  5. DEXAMETHASONE [Concomitant]
  6. DURAGESIC-100 [Concomitant]
  7. METOPROLOL SUCCINATE [Concomitant]
  8. NEXIUM [Concomitant]
  9. DIGOXIN [Concomitant]

REACTIONS (2)
  - MYOCARDIAL INFARCTION [None]
  - THROMBOCYTOPENIA [None]
